FAERS Safety Report 4420942-0 (Version None)
Quarter: 2004Q3

REPORT INFORMATION
  Report Type: 
  Country: None (occurrence: None)
  Receive Date: 20040809
  Receipt Date: 20040728
  Transmission Date: 20050211
  Serious: Yes (Other)
  Sender: FDA-Public Use
  Company Number: US-JNJFOC-20040506349

PATIENT
  Sex: Male
  Weight: 85.28 kg

DRUGS (6)
  1. REMICADE [Suspect]
     Indication: ANKYLOSING SPONDYLITIS
     Dosage: OVER 4 HOURS
     Route: 042
  2. FOLIC ACID [Concomitant]
     Dosage: USED WITH METHOTREXATE
     Route: 049
  3. METHOTREXATE [Concomitant]
     Indication: ANKYLOSING SPONDYLITIS
     Route: 049
  4. ZOCOR [Concomitant]
     Route: 049
  5. FOSAMAX [Concomitant]
     Indication: OSTEOPOROSIS
  6. RELAFEN [Concomitant]

REACTIONS (1)
  - MALIGNANT MELANOMA [None]
